FAERS Safety Report 19277304 (Version 3)
Quarter: 2021Q2

REPORT INFORMATION
  Report Type: Spontaneous
  Country: DE (occurrence: DE)
  Receive Date: 20210519
  Receipt Date: 20210620
  Transmission Date: 20210717
  Serious: Yes (Hospitalization, Other)
  Sender: FDA-Public Use
  Company Number: DE-JNJFOC-20210520465

PATIENT
  Age: 29 Year
  Sex: Female
  Weight: 54 kg

DRUGS (1)
  1. SIROS [Suspect]
     Active Substance: ITRACONAZOLE
     Indication: INFECTION
     Dosage: EVENING AND MORNING 2 CAPSULES
     Route: 048
     Dates: start: 20071117, end: 20071118

REACTIONS (26)
  - Apraxia [Recovering/Resolving]
  - Organic brain syndrome [Recovering/Resolving]
  - General physical health deterioration [Recovering/Resolving]
  - Paraesthesia [Recovering/Resolving]
  - Pancytopenia [Recovering/Resolving]
  - Sensory overload [Recovering/Resolving]
  - Loss of consciousness [Recovered/Resolved]
  - Malaise [Recovering/Resolving]
  - Anxiety [Recovering/Resolving]
  - Aphasia [Recovering/Resolving]
  - Restlessness [Recovering/Resolving]
  - Nausea [Recovering/Resolving]
  - Confusional state [Recovering/Resolving]
  - Sensitisation [Recovering/Resolving]
  - Headache [Recovered/Resolved with Sequelae]
  - Dizziness [Recovering/Resolving]
  - Encephalitis viral [Recovered/Resolved]
  - Paralysis [Recovered/Resolved]
  - Illness anxiety disorder [Recovering/Resolving]
  - Ear discomfort [Recovering/Resolving]
  - Asthenia [Recovering/Resolving]
  - Encephalitis [Recovered/Resolved]
  - Sensory disturbance [Recovering/Resolving]
  - Fine motor skill dysfunction [Recovered/Resolved]
  - Gait disturbance [Recovering/Resolving]
  - Ataxia [Recovering/Resolving]

NARRATIVE: CASE EVENT DATE: 2007
